FAERS Safety Report 19280345 (Version 1)
Quarter: 2021Q2

REPORT INFORMATION
  Report Type: Spontaneous
  Country: NL (occurrence: FR)
  Receive Date: 20210520
  Receipt Date: 20210520
  Transmission Date: 20210717
  Serious: Yes (Hospitalization)
  Sender: FDA-Public Use
  Company Number: FR-FRESENIUS KABI-FK202105068

PATIENT
  Age: 19 Year
  Sex: Female
  Weight: 56 kg

DRUGS (5)
  1. IBUPROFEN. [Suspect]
     Active Substance: IBUPROFEN
     Indication: TOOTHACHE
     Route: 065
     Dates: start: 20210326, end: 20210330
  2. TRAMADOL. [Suspect]
     Active Substance: TRAMADOL
     Indication: TOOTHACHE
     Route: 065
     Dates: start: 20210326, end: 20210330
  3. PARACETAMOL (MANUFACTURER UNKNOWN) [Suspect]
     Active Substance: ACETAMINOPHEN
     Indication: TOOTHACHE
     Route: 065
     Dates: start: 20210326, end: 20210330
  4. PARACETAMOL/TRAMADOL HYDROCHLORIDE [Suspect]
     Active Substance: ACETAMINOPHEN\TRAMADOL HYDROCHLORIDE
     Indication: TOOTHACHE
     Route: 065
     Dates: start: 20210326, end: 20210330
  5. PARACETAMOL [Suspect]
     Active Substance: ACETAMINOPHEN
     Indication: TOOTHACHE
     Route: 065
     Dates: start: 20210326, end: 20210330

REACTIONS (2)
  - Incorrect dosage administered [Recovered/Resolved]
  - Abdominal pain [Recovered/Resolved]

NARRATIVE: CASE EVENT DATE: 20210330
